FAERS Safety Report 5414778-1 (Version None)
Quarter: 2007Q3

REPORT INFORMATION
  Report Type: 
  Country: None (occurrence: None)
  Receive Date: 20070713
  Receipt Date: 20070424
  Transmission Date: 20080115
  Serious: Yes (Hospitalization)
  Sender: FDA-Public Use
  Company Number: US-JNJFOC-20060903677

PATIENT
  Age: 38 Year
  Sex: Female
  Weight: 88.4514 kg

DRUGS (5)
  1. ORTHO EVRA [Suspect]
     Indication: CONTRACEPTION
     Dates: start: 20030101
  2. LOVASTATIN [Concomitant]
  3. CAPTOPRIL [Concomitant]
  4. NPH INSULIN (INSULIN INJECTION, ISOPHANE) [Concomitant]
  5. REGULAR INSULIN [Concomitant]

REACTIONS (1)
  - PULMONARY EMBOLISM [None]
